FAERS Safety Report 5090889-8 (Version None)
Quarter: 2006Q3

REPORT INFORMATION
  Report Type: 
  Country: None (occurrence: None)
  Receive Date: 20060823
  Receipt Date: 20060809
  Transmission Date: 20061208
  Serious: Yes (Other)
  Sender: FDA-Public Use
  Company Number: TUK2006A00056

PATIENT
  Age: 70 Year
  Sex: Male

DRUGS (10)
  1. ACTOS [Suspect]
     Indication: DIABETES MELLITUS
     Dosage: 15 MG ORAL
     Route: 048
     Dates: start: 20060420, end: 20060706
  2. BENDROFLUAZIDE (BENDROFLUMETHIAZIDE) [Concomitant]
  3. ENALAPRIL [Concomitant]
  4. EZETIMIBE (EZETIMIBE) [Concomitant]
  5. GLICLAZIDE(GLICLAZIDE) [Concomitant]
  6. LERCANIDIPINE [Concomitant]
  7. METFORMIN (METFORMIN) [Concomitant]
  8. OMEPRAZOLE [Concomitant]
  9. SULFASALAZINE [Concomitant]
  10. SOTALOL HYDROCHLORIDE [Concomitant]

REACTIONS (2)
  - ATRIAL FIBRILLATION [None]
  - CONDITION AGGRAVATED [None]
